FAERS Safety Report 7757314-7 (Version None)
Quarter: 2011Q3

REPORT INFORMATION
  Report Type: 
  Country: None (occurrence: None)
  Receive Date: 20110916
  Receipt Date: 20110914
  Transmission Date: 20111222
  Serious: Yes (Hospitalization, Other)
  Sender: FDA-Public Use
  Company Number: JP-ABBOTT-11P-087-0854811-00

PATIENT
  Sex: Male

DRUGS (5)
  1. PREDNISOLONE [Concomitant]
     Dates: start: 20110216, end: 20110302
  2. HUMIRA [Suspect]
     Dates: start: 20110201, end: 20110201
  3. HUMIRA [Suspect]
     Dates: start: 20110215
  4. PREDNISOLONE [Concomitant]
     Indication: CROHN'S DISEASE
     Route: 048
     Dates: end: 20110215
  5. HUMIRA [Suspect]
     Indication: CROHN'S DISEASE
     Route: 058
     Dates: start: 20110113, end: 20110113

REACTIONS (3)
  - ABDOMINAL PAIN [None]
  - ILEAL STENOSIS [None]
  - INTESTINAL OBSTRUCTION [None]
